FAERS Safety Report 7453205-X (Version None)
Quarter: 2011Q2

REPORT INFORMATION
  Report Type: 
  Country: None (occurrence: None)
  Receive Date: 20110502
  Receipt Date: 20110425
  Transmission Date: 20111010
  Serious: No
  Sender: FDA-Public Use
  Company Number: US-PFIZER INC-2011089519

PATIENT

DRUGS (1)
  1. ZYVOX [Suspect]
     Dosage: 600 MG, UNK
     Route: 048
     Dates: start: 20110406, end: 20110413

REACTIONS (2)
  - ASTHENIA [None]
  - MUSCLE TWITCHING [None]
